FAERS Safety Report 7244509-4 (Version None)
Quarter: 2011Q1

REPORT INFORMATION
  Report Type: 
  Country: None (occurrence: None)
  Receive Date: 20110125
  Receipt Date: 20110112
  Transmission Date: 20110831
  Serious: Yes (Hospitalization)
  Sender: FDA-Public Use
  Company Number: PL-WATSON-2011-00624

PATIENT
  Age: 60 Year
  Sex: Female

DRUGS (2)
  1. LORATADINE [Suspect]
     Indication: PRURITUS
  2. LORATADINE [Suspect]
     Indication: PSORIASIS
     Dosage: 10 MG, DAILY
     Route: 048

REACTIONS (2)
  - DYSPNOEA [None]
  - URTICARIA [None]
